FAERS Safety Report 5215801-X (Version None)
Quarter: 2007Q1

REPORT INFORMATION
  Report Type: 
  Country: None (occurrence: None)
  Receive Date: 20070118
  Receipt Date: 20070108
  Transmission Date: 20070707
  Serious: Yes (Death, Hospitalization)
  Sender: FDA-Public Use
  Company Number: 233818

PATIENT
  Age: 54 Year
  Sex: Female
  Weight: 63.9 kg

DRUGS (5)
  1. BEVACIZUMAB(BEVACIZUMAB) PWDR + SOLVENT,INFUSION SOLN,  100MG [Suspect]
     Indication: COLON CANCER METASTATIC
     Dosage: 640 MG, Q3W, INTRAVENOUS
     Route: 042
     Dates: start: 20061026
  2. XELODA [Suspect]
     Indication: COLON CANCER
     Dosage: 1650 MG, ORAL
     Route: 048
     Dates: start: 20061026, end: 20061116
  3. DARVOCET (ACETAMINOPHEN, PROPOXYPHENE NAPSYLATE) [Concomitant]
  4. PHENERGAN (PROMETHAZINE HYDROCHLORIDE) [Concomitant]
  5. PROPOFOL [Concomitant]

REACTIONS (17)
  - ABDOMINAL PAIN [None]
  - ATELECTASIS [None]
  - BLOOD BILIRUBIN INCREASED [None]
  - CARDIAC ARREST [None]
  - DIARRHOEA [None]
  - DYSPNOEA [None]
  - HEPATIC NECROSIS [None]
  - HEPATIC STEATOSIS [None]
  - INTESTINAL ISCHAEMIA [None]
  - LACTIC ACIDOSIS [None]
  - LOSS OF CONSCIOUSNESS [None]
  - NAUSEA [None]
  - PELVIC VENOUS THROMBOSIS [None]
  - PERITONEAL EFFUSION [None]
  - SEPSIS [None]
  - TACHYCARDIA [None]
  - URINARY TRACT INFECTION [None]
